FAERS Safety Report 6235859-9 (Version None)
Quarter: 2009Q2

REPORT INFORMATION
  Report Type: 
  Country: None (occurrence: None)
  Receive Date: 20090619
  Receipt Date: 20090610
  Transmission Date: 20091009
  Serious: Yes (Other)
  Sender: FDA-Public Use
  Company Number: US-JNJFOC-20090604192

PATIENT
  Sex: Male
  Weight: 117.48 kg

DRUGS (1)
  1. REMICADE [Suspect]
     Indication: PROCTITIS ULCERATIVE
     Dosage: TOTAL OF 6 VIALS
     Route: 042

REACTIONS (2)
  - CHEST PAIN [None]
  - HEPATIC STEATOSIS [None]
